FAERS Safety Report 23076185 (Version 2)
Quarter: 2023Q4

REPORT INFORMATION
  Report Type: Spontaneous
  Country: FR (occurrence: FR)
  Receive Date: 20231017
  Receipt Date: 20231026
  Transmission Date: 20240110
  Serious: Yes (Death, Hospitalization, Other)
  Sender: FDA-Public Use
  Company Number: None

PATIENT
  Age: 68 Year
  Sex: Female
  Weight: 50 kg

DRUGS (10)
  1. TECVAYLI [Suspect]
     Active Substance: TECLISTAMAB-CQYV
     Indication: Plasma cell myeloma refractory
     Dosage: 0.06 MG/KG SC ON D1?4TH LINE OF TREATMENT
     Route: 058
     Dates: start: 20230724, end: 20230728
  2. TECVAYLI [Suspect]
     Active Substance: TECLISTAMAB-CQYV
     Dosage: THEN 0.3 MG/KG ON D3
     Route: 058
     Dates: start: 20230726
  3. TECVAYLI [Suspect]
     Active Substance: TECLISTAMAB-CQYV
     Dosage: 1.5 MG/KG ON D5
     Route: 058
     Dates: start: 20230728, end: 20230728
  4. ATOVAQUONE [Concomitant]
     Active Substance: ATOVAQUONE
     Indication: Product used for unknown indication
     Dosage: ATOVAQUONE 750: 1 TAB IN THE MORNING AND EVENING
     Route: 065
     Dates: start: 20230724
  5. VALGANCICLOVIR [Concomitant]
     Active Substance: VALGANCICLOVIR
     Indication: Cytomegalovirus infection
     Dosage: VALGANCICLOVIR 450 MG: 2 TABS IN THE MORNING
     Route: 065
  6. EPOETIN ALFA-EPBX [Concomitant]
     Active Substance: EPOETIN ALFA-EPBX
     Indication: Product used for unknown indication
     Dosage: DO NOT DO IF HB GREATER THAN 120 G/L AND RESUME IF HB LESS THAN 110 G/L IN LAST MONTH^S ASSESSMENT
     Route: 058
  7. HYQVIA [Concomitant]
     Active Substance: HUMAN IMMUNOGLOBULIN G\HYALURONIDASE (HUMAN RECOMBINANT)
     Indication: Product used for unknown indication
     Dosage: (LAST PERFORMED ON 07/20)
     Route: 058
     Dates: end: 20230720
  8. DOLIPRANE [Concomitant]
     Active Substance: ACETAMINOPHEN
     Indication: Back pain
     Dosage: 1 TAB EVERY 8 HOURS UP TO 3X PER DAY SINCE 22JUN-2023
     Route: 065
     Dates: start: 20230622
  9. FENTANYL [Concomitant]
     Active Substance: FENTANYL\FENTANYL CITRATE
     Indication: Product used for unknown indication
     Dosage: 25 MG IN PATCH EVERY 3 DAYS FOR 1 MONTH
     Route: 065
  10. MORPHINE SULFATE [Concomitant]
     Active Substance: MORPHINE SULFATE
     Indication: Pain
     Dosage: ACTISKENAN 5 MG IN TABLET FOR PAIN UP TO 4 TIMES PER DAY FOR 1 MONTH
     Route: 065

REACTIONS (3)
  - Death [Fatal]
  - Diarrhoea [Recovered/Resolved with Sequelae]
  - Lung disorder [Unknown]

NARRATIVE: CASE EVENT DATE: 20230101
